FAERS Safety Report 5848998-9 (Version None)
Quarter: 2008Q3

REPORT INFORMATION
  Report Type: 
  Country: None (occurrence: None)
  Receive Date: 20080814
  Receipt Date: 20080730
  Transmission Date: 20090109
  Serious: Yes (Hospitalization)
  Sender: FDA-Public Use
  Company Number: WAES 0806USA02134

PATIENT
  Age: 81 Year
  Sex: Male
  Weight: 87.9978 kg

DRUGS (32)
  1. CAP VORINOSTAT UNK [Suspect]
     Indication: ACUTE MYELOID LEUKAEMIA
     Dosage: 400 MG/DAILY/PO
     Route: 048
     Dates: start: 20080317, end: 20080413
  2. CAP VORINOSTAT UNK [Suspect]
     Indication: ACUTE MYELOID LEUKAEMIA
     Dosage: 400 MG/DAILY/PO
     Route: 048
     Dates: start: 20080414, end: 20080513
  3. CAP VORINOSTAT UNK [Suspect]
     Indication: ACUTE MYELOID LEUKAEMIA
     Dosage: 400 MG/DAILY/PO
     Route: 048
     Dates: start: 20080514, end: 20080615
  4. CAP VORINOSTAT UNK [Suspect]
     Indication: ACUTE MYELOID LEUKAEMIA
     Dosage: 400 MG/DAILY/PO
     Route: 048
     Dates: start: 20080616, end: 20080722
  5. DECITABINE UNK [Suspect]
     Indication: ACUTE MYELOID LEUKAEMIA
     Dosage: 38.6 MG/DAILY/IV, 40.2 MG/DAILY/IV, 40 MG/DAILY/IV
     Route: 042
     Dates: start: 20080317, end: 20080321
  6. DECITABINE UNK [Suspect]
     Indication: ACUTE MYELOID LEUKAEMIA
     Dosage: 38.6 MG/DAILY/IV, 40.2 MG/DAILY/IV, 40 MG/DAILY/IV
     Route: 042
     Dates: start: 20080414, end: 20080418
  7. DECITABINE UNK [Suspect]
     Indication: ACUTE MYELOID LEUKAEMIA
     Dosage: 38.6 MG/DAILY/IV, 40.2 MG/DAILY/IV, 40 MG/DAILY/IV
     Route: 042
     Dates: start: 20080514, end: 20080518
  8. DECITABINE UNK [Suspect]
     Indication: ACUTE MYELOID LEUKAEMIA
     Dosage: 38.6 MG/DAILY/IV, 40.2 MG/DAILY/IV, 40 MG/DAILY/IV
     Route: 042
     Dates: start: 20080616, end: 20080620
  9. DECITABINE UNK [Suspect]
     Indication: ACUTE MYELOID LEUKAEMIA
     Dosage: 38.6 MG/DAILY/IV, 40.2 MG/DAILY/IV, 40 MG/DAILY/IV
     Route: 042
     Dates: start: 20080723, end: 20080723
  10. AVELOX [Concomitant]
  11. CENTRUM SILVER [Concomitant]
  12. COSOPT [Concomitant]
  13. OS-CAL + D [Concomitant]
  14. SINGULAIR [Concomitant]
  15. VITRON-C [Concomitant]
  16. ZETIA [Concomitant]
  17. ACYCLOVIR [Concomitant]
  18. AMLODIPINE BESYLATE [Concomitant]
  19. ATORVASTATIN CALCIUM [Concomitant]
  20. DORZOLAMIDE HYDROCHLORIDE [Concomitant]
  21. FEXOFENADINE HYDROCHLORIDE [Concomitant]
  22. IMIPENEM [Concomitant]
  23. LANTUS [Concomitant]
  24. INSULIN LISPRO [Concomitant]
  25. LANSOPRAZOLE [Concomitant]
  26. OLMESARTAN MEDOXOMIL [Concomitant]
  27. PAROXETINE HCL [Concomitant]
  28. PIOGLITAZONE HCL [Concomitant]
  29. PREGABALIN [Concomitant]
  30. TAMSULOSIN HCL [Concomitant]
  31. VANCOMYCIN HYDROCHLORIDE [Concomitant]
  32. VANCOMYCIN HYDROCHLORIDE [Concomitant]

REACTIONS (6)
  - COUGH [None]
  - FEBRILE NEUTROPENIA [None]
  - FLATULENCE [None]
  - PNEUMONIA [None]
  - PNEUMONIA FUNGAL [None]
  - PYREXIA [None]
